FAERS Safety Report 15115814 (Version 54)
Quarter: 2023Q4

REPORT INFORMATION
  Report Type: Report from Study
  Country: GB (occurrence: GB)
  Receive Date: 20180706
  Receipt Date: 20231003
  Transmission Date: 20240109
  Serious: Yes (Death, Hospitalization, Congenital Anomaly, Other)
  Sender: FDA-Public Use
  Company Number: GB-MYLANLABS-2018M1048354

PATIENT
  Age: 3 Month
  Sex: Male

DRUGS (133)
  1. EFAVIRENZ [Suspect]
     Active Substance: EFAVIRENZ
     Indication: HIV infection
     Dosage: 1 DOSAGE FORM START DATE: 06-OCT-2017
     Route: 064
  2. EFAVIRENZ [Suspect]
     Active Substance: EFAVIRENZ
     Indication: Foetal exposure during pregnancy
     Dosage: 1 UG/LITRE, QD (1 TABLET/CAPSULE)START DATE: 06-OCT-2017
     Route: 064
  3. EFAVIRENZ [Suspect]
     Active Substance: EFAVIRENZ
     Dosage: UNK
     Route: 064
  4. EFAVIRENZ [Suspect]
     Active Substance: EFAVIRENZ
     Dosage: 1 DOSAGE FORM, QD START DATE: 05-FEB-2018
     Route: 064
  5. EFAVIRENZ [Suspect]
     Active Substance: EFAVIRENZ
     Dosage: 1 DOSAGE FORM, QD
     Route: 064
  6. EFAVIRENZ [Suspect]
     Active Substance: EFAVIRENZ
     Dosage: 1 DOSAGE FORM, QD (MATERNAL DOSE: 1 DF, QD START DATE: 06-OCT-2017)
     Route: 064
  7. EFAVIRENZ [Suspect]
     Active Substance: EFAVIRENZ
     Dosage: 1 UG/LITRE, QD (1 TABLET/CAPSULE)START DATE: 06-OCT-2017
     Route: 064
  8. EFAVIRENZ [Suspect]
     Active Substance: EFAVIRENZ
     Dosage: 1 DOSAGE FORM, QD (MATERNAL DOSE: 1 DOSAGE FORM, QD)
     Route: 065
  9. EFAVIRENZ [Suspect]
     Active Substance: EFAVIRENZ
     Dosage: MATERNAL DOSE:UNK (START DATE: 6-OCT-2017)
     Route: 064
     Dates: end: 20180205
  10. EMTRICITABINE\TENOFOVIR DISOPROXIL [Suspect]
     Active Substance: EMTRICITABINE\TENOFOVIR DISOPROXIL
     Indication: HIV infection
     Dosage: 1 DF, MATERNAL DOSE: 1 TABLET/CAPSULE, QD START DATE: 06-OCT-2017
     Route: 064
  11. EMTRICITABINE\TENOFOVIR DISOPROXIL [Suspect]
     Active Substance: EMTRICITABINE\TENOFOVIR DISOPROXIL
     Indication: Foetal exposure during pregnancy
     Dosage: MATERNAL DOSE: UNK
     Route: 064
  12. EMTRICITABINE\TENOFOVIR DISOPROXIL [Suspect]
     Active Substance: EMTRICITABINE\TENOFOVIR DISOPROXIL
     Indication: Supplementation therapy
     Dosage: 1 DOSAGE FORM, QD
     Route: 064
  13. EMTRICITABINE\TENOFOVIR DISOPROXIL [Suspect]
     Active Substance: EMTRICITABINE\TENOFOVIR DISOPROXIL
     Dosage: 1 DOSAGE FORM, QD START DATE: 05-FEB-2018
     Route: 064
  14. EMTRICITABINE\TENOFOVIR DISOPROXIL [Suspect]
     Active Substance: EMTRICITABINE\TENOFOVIR DISOPROXIL
     Dosage: 1 DOSAGE FORM, QD (1 TABLET/CAPSULE, DAILY) START DATE: 06-OCT-2017
     Route: 064
  15. EMTRICITABINE\TENOFOVIR DISOPROXIL [Suspect]
     Active Substance: EMTRICITABINE\TENOFOVIR DISOPROXIL
     Dosage: 1 DOSAGE FORM, QD START DATE: 06-OCT-2017
     Route: 064
     Dates: end: 20180205
  16. EMTRICITABINE\TENOFOVIR DISOPROXIL [Suspect]
     Active Substance: EMTRICITABINE\TENOFOVIR DISOPROXIL
     Dosage: MATERNAL DOSE: 1 DF, 1 TABLET/CAPSULE, DAILY START DATE: 10-JUN-2017
     Route: 065
     Dates: end: 20180205
  17. LABETALOL [Suspect]
     Active Substance: LABETALOL\LABETALOL HYDROCHLORIDE
     Indication: Foetal exposure during pregnancy
     Dosage: MATERNAL DOSE: 300 MG
     Route: 064
     Dates: start: 20090101, end: 20100610
  18. LABETALOL [Suspect]
     Active Substance: LABETALOL\LABETALOL HYDROCHLORIDE
     Dosage: UNK
     Route: 064
  19. LABETALOL [Suspect]
     Active Substance: LABETALOL\LABETALOL HYDROCHLORIDE
     Dosage: MATERNAL DOSE: 300 MG
     Route: 064
     Dates: start: 20090101, end: 20100610
  20. LABETALOL [Suspect]
     Active Substance: LABETALOL\LABETALOL HYDROCHLORIDE
     Dosage: UNK
     Route: 064
  21. LABETALOL [Suspect]
     Active Substance: LABETALOL\LABETALOL HYDROCHLORIDE
     Dosage: MATERNAL DOSE: UNK
     Route: 065
  22. LABETALOL [Suspect]
     Active Substance: LABETALOL\LABETALOL HYDROCHLORIDE
     Dosage: UNK (MATERNAL DOSE: UNKNOWN)
     Route: 064
  23. METFORMIN [Suspect]
     Active Substance: METFORMIN HYDROCHLORIDE
     Indication: Foetal exposure during pregnancy
     Dosage: UNK
     Route: 064
  24. METFORMIN [Suspect]
     Active Substance: METFORMIN HYDROCHLORIDE
     Dosage: UNK
     Route: 064
  25. METFORMIN [Suspect]
     Active Substance: METFORMIN HYDROCHLORIDE
     Dosage: UNK
     Route: 064
  26. METFORMIN [Suspect]
     Active Substance: METFORMIN HYDROCHLORIDE
     Dosage: MATERNAL DOSE: 400 MG, QD
     Route: 064
     Dates: start: 20090101, end: 20100610
  27. METFORMIN [Suspect]
     Active Substance: METFORMIN HYDROCHLORIDE
     Dosage: UNK
     Route: 064
  28. METFORMIN [Suspect]
     Active Substance: METFORMIN HYDROCHLORIDE
     Dosage: MATERNAL DOSE: UNK
     Route: 065
  29. METFORMIN [Suspect]
     Active Substance: METFORMIN HYDROCHLORIDE
     Dosage: UNK
     Route: 064
  30. TRUVADA [Suspect]
     Active Substance: EMTRICITABINE\TENOFOVIR DISOPROXIL FUMARATE
     Indication: HIV infection
     Dosage: 1 UG/LITRE, QD (1 TABLET/CAPSULE)START DATE: 06-OCT-2017
     Route: 064
  31. TRUVADA [Suspect]
     Active Substance: EMTRICITABINE\TENOFOVIR DISOPROXIL FUMARATE
     Indication: Foetal exposure during pregnancy
     Dosage: 1 DOSAGE FORM, QD START DATE: 05-FEB-2018
     Route: 064
  32. TRUVADA [Suspect]
     Active Substance: EMTRICITABINE\TENOFOVIR DISOPROXIL FUMARATE
     Indication: Supplementation therapy
     Dosage: 1 DF, QD START DATE: 06-OCT-2017
     Route: 064
  33. TRUVADA [Suspect]
     Active Substance: EMTRICITABINE\TENOFOVIR DISOPROXIL FUMARATE
     Dosage: (1 DOSAGE FORM, QD;1 TABLET/CAPSULE, QD)START DATE: 05-FEB-2018
     Route: 048
  34. TRUVADA [Suspect]
     Active Substance: EMTRICITABINE\TENOFOVIR DISOPROXIL FUMARATE
     Dosage: MATERNAL DOSE: 1 DF, QD START DATE: 05-FEB-2018
     Route: 065
  35. TRUVADA [Suspect]
     Active Substance: EMTRICITABINE\TENOFOVIR DISOPROXIL FUMARATE
     Dosage: MATERNAL DOSE: 1 DF, QD START DATE: 06-OCT-2017
     Route: 065
  36. TRUVADA [Suspect]
     Active Substance: EMTRICITABINE\TENOFOVIR DISOPROXIL FUMARATE
     Dosage: 1 DF QD (1 DOSAGE FORM, QD)
     Route: 064
  37. TRUVADA [Suspect]
     Active Substance: EMTRICITABINE\TENOFOVIR DISOPROXIL FUMARATE
     Dosage: 1 DOSAGE FORM QD 1 TABLET/CAPSULE
     Route: 064
  38. FOLATE SODIUM [Suspect]
     Active Substance: FOLATE SODIUM
     Indication: Supplementation therapy
     Dosage: 1 DOSAGE FORM, QD ((1 TABLET/CAPSULE, DAILY)
     Route: 064
  39. FOLATE SODIUM [Suspect]
     Active Substance: FOLATE SODIUM
     Indication: Foetal exposure during pregnancy
     Dosage: UNK
     Route: 064
  40. FOLATE SODIUM [Suspect]
     Active Substance: FOLATE SODIUM
     Dosage: UNK
     Route: 064
  41. FOLATE SODIUM [Suspect]
     Active Substance: FOLATE SODIUM
     Dosage: UNK
     Route: 064
  42. FOLATE SODIUM [Suspect]
     Active Substance: FOLATE SODIUM
     Dosage: MATERNAL DOSE: UNK
     Route: 064
  43. FOLATE SODIUM [Suspect]
     Active Substance: FOLATE SODIUM
     Dosage: MATERNAL DOSE: UNK
     Route: 064
  44. INSULIN ASPART [Suspect]
     Active Substance: INSULIN ASPART
     Indication: Product used for unknown indication
     Dosage: UNK
     Route: 064
  45. INSULIN ASPART [Suspect]
     Active Substance: INSULIN ASPART
     Dosage: MATERNAL DOSE: UNK
     Route: 064
  46. FOLATE SODIUM [Suspect]
     Active Substance: FOLATE SODIUM
     Indication: Supplementation therapy
     Dosage: UNK
     Route: 064
  47. FOLATE SODIUM [Suspect]
     Active Substance: FOLATE SODIUM
     Indication: Foetal exposure during pregnancy
     Dosage: UNK
     Route: 064
  48. FOLATE SODIUM [Suspect]
     Active Substance: FOLATE SODIUM
     Dosage: MATERNAL DOSE: UNKNOWN
     Route: 064
  49. FOLATE SODIUM [Suspect]
     Active Substance: FOLATE SODIUM
     Dosage: MATERNAL DOSE: UNK
     Route: 065
  50. FOLATE SODIUM [Suspect]
     Active Substance: FOLATE SODIUM
     Dosage: UNK (MATERNAL DOSE: UNKNOWN)
     Route: 064
  51. INSULIN ASPART [Suspect]
     Active Substance: INSULIN ASPART
     Indication: Foetal exposure during pregnancy
     Dosage: MATERNAL DOSE: UNK
     Route: 064
  52. INSULIN ASPART [Suspect]
     Active Substance: INSULIN ASPART
     Indication: Maternal exposure timing unspecified
     Dosage: UNK
     Route: 064
  53. INSULIN ASPART [Suspect]
     Active Substance: INSULIN ASPART
     Dosage: MATERNAL DOSE: UNK
     Route: 064
  54. INSULIN ASPART [Suspect]
     Active Substance: INSULIN ASPART
     Dosage: UNK
     Route: 064
  55. INSULIN ASPART [Suspect]
     Active Substance: INSULIN ASPART
     Dosage: MATERNAL DOSE: UNK
     Route: 065
  56. INSULIN ASPART [Suspect]
     Active Substance: INSULIN ASPART
     Dosage: UNK
     Route: 064
  57. LOPINAVIR\RITONAVIR [Suspect]
     Active Substance: LOPINAVIR\RITONAVIR
     Indication: Antiviral treatment
     Dosage: MATERNAL DOSE: UNK
     Route: 064
     Dates: start: 20100610, end: 20100629
  58. LOPINAVIR\RITONAVIR [Suspect]
     Active Substance: LOPINAVIR\RITONAVIR
     Indication: HIV infection
     Dosage: MATERNAL DOSE: UNK
     Route: 064
     Dates: start: 20100610
  59. LOPINAVIR\RITONAVIR [Suspect]
     Active Substance: LOPINAVIR\RITONAVIR
     Indication: Foetal exposure during pregnancy
     Dosage: MATERNAL DOSE: UNK
     Route: 064
     Dates: end: 20100610
  60. VITAMIN B12 [Suspect]
     Active Substance: CYANOCOBALAMIN
     Indication: Supplementation therapy
     Dosage: MATERNAL DOSE: UNK
     Route: 064
     Dates: start: 20100610
  61. VITAMIN B12 [Suspect]
     Active Substance: CYANOCOBALAMIN
     Indication: Foetal exposure during pregnancy
     Dosage: MATERNAL DOSE: 800 MG, QD
     Route: 064
     Dates: start: 20090110, end: 20100610
  62. VITAMIN B12 [Suspect]
     Active Substance: CYANOCOBALAMIN
     Indication: Maternal exposure timing unspecified
     Dosage: MATERNAL DOSE: UNK
     Route: 064
  63. EMTRICITABINE [Suspect]
     Active Substance: EMTRICITABINE
     Indication: Foetal exposure during pregnancy
     Dosage: 1 DOSAGE FORM, QD (1 TABLET/CAPSULE, QD) START DATE: 06-OCT-2017
     Route: 064
  64. EMTRICITABINE [Suspect]
     Active Substance: EMTRICITABINE
     Dosage: MATERNAL DOSE: 1 DOSAGE FORM, QD START DATE: 05-FEB-2018
     Route: 064
  65. TENOFOVIR DISOPROXIL FUMARATE [Suspect]
     Active Substance: TENOFOVIR DISOPROXIL FUMARATE
     Indication: HIV infection
     Dosage: 1 DF, MATERNAL DOSE: 1 UG/LITRE, START DATE: 06-OCT-2017
     Route: 064
     Dates: end: 20180205
  66. TENOFOVIR DISOPROXIL FUMARATE [Suspect]
     Active Substance: TENOFOVIR DISOPROXIL FUMARATE
     Indication: Supplementation therapy
     Dosage: 1 DOSAGE FORM, QD START DATE: 05-FEB-2018
     Route: 064
  67. TENOFOVIR DISOPROXIL FUMARATE [Suspect]
     Active Substance: TENOFOVIR DISOPROXIL FUMARATE
     Dosage: 1 DOSAGE FORM, QD THERAPY DATE 06-OCT-2017
     Route: 065
  68. TENOFOVIR DISOPROXIL FUMARATE [Suspect]
     Active Substance: TENOFOVIR DISOPROXIL FUMARATE
     Dosage: 1 DOSAGE FORM, QD (THERAPY START DATE 05-FEB-2018)
     Route: 065
  69. TENOFOVIR DISOPROXIL FUMARATE [Suspect]
     Active Substance: TENOFOVIR DISOPROXIL FUMARATE
     Dosage: 1 DOSAGE FORM, QD (1 DF, QD START DATE: 06-OCT-2017)
     Route: 065
  70. TENOFOVIR DISOPROXIL FUMARATE [Suspect]
     Active Substance: TENOFOVIR DISOPROXIL FUMARATE
     Dosage: UNK
     Route: 064
     Dates: start: 20100610, end: 20100629
  71. INSULIN ASPART [Suspect]
     Active Substance: INSULIN ASPART
     Indication: Foetal exposure during pregnancy
     Dosage: UNK
     Route: 064
  72. INSULIN ASPART [Suspect]
     Active Substance: INSULIN ASPART
     Indication: Maternal exposure timing unspecified
     Dosage: MATERNAL DOSE: UNK
     Route: 064
  73. INSULIN ASPART [Suspect]
     Active Substance: INSULIN ASPART
     Dosage: UNK
     Route: 064
  74. KALETRA [Suspect]
     Active Substance: LOPINAVIR\RITONAVIR
     Indication: HIV infection
     Dosage: MATERNAL DOSE: UNK
     Route: 064
     Dates: start: 20100610
  75. KALETRA [Suspect]
     Active Substance: LOPINAVIR\RITONAVIR
     Indication: Foetal exposure during pregnancy
     Dosage: MATERNAL DOSE: UNK
     Route: 065
     Dates: start: 20100610
  76. LAMIVUDINE [Suspect]
     Active Substance: LAMIVUDINE
     Indication: Foetal exposure during pregnancy
     Dosage: MATERNAL DOSE: 300 MG ORAL
     Route: 064
     Dates: start: 20090101, end: 20100610
  77. LAMIVUDINE [Suspect]
     Active Substance: LAMIVUDINE
     Indication: Antiretroviral therapy
     Dosage: MATERNAL DOSE: 300 MG
     Route: 064
     Dates: start: 20090101, end: 20100610
  78. LAMIVUDINE [Suspect]
     Active Substance: LAMIVUDINE
     Dosage: 300 MILLIGRAM (MATERNAL DOSE)
     Route: 064
     Dates: start: 20100610, end: 20100610
  79. NEVIRAPINE [Suspect]
     Active Substance: NEVIRAPINE
     Indication: Antiviral treatment
     Dosage: 400 MILLIGRAM, QD (MATERNAL EXPOSURE)
     Route: 064
     Dates: start: 20090101, end: 20100610
  80. NEVIRAPINE [Suspect]
     Active Substance: NEVIRAPINE
     Indication: Foetal exposure during pregnancy
     Dosage: MATERNAL DOSE:400 MG, QD
     Route: 064
     Dates: start: 20090101, end: 20100610
  81. NEVIRAPINE [Suspect]
     Active Substance: NEVIRAPINE
     Dosage: UNK
     Route: 064
  82. NEVIRAPINE [Suspect]
     Active Substance: NEVIRAPINE
     Dosage: UNK
     Route: 065
  83. TENOFOVIR [Suspect]
     Active Substance: TENOFOVIR
     Indication: HIV infection
     Dosage: MATERNAL DOSE: 300 MG, QD
     Route: 064
     Dates: start: 20100610
  84. TENOFOVIR [Suspect]
     Active Substance: TENOFOVIR
     Indication: Foetal exposure during pregnancy
     Dosage: MATERNAL DOSE: 300 MG, QD
     Route: 064
     Dates: start: 20100610
  85. TENOFOVIR [Suspect]
     Active Substance: TENOFOVIR
     Dosage: UNK
     Route: 065
     Dates: start: 20100610
  86. ZIDOVUDINE [Suspect]
     Active Substance: ZIDOVUDINE
     Indication: Antiviral treatment
     Dosage: MATERNAL DOSE: 600 MG, QD
     Route: 064
     Dates: start: 20090110, end: 20100610
  87. ZIDOVUDINE [Suspect]
     Active Substance: ZIDOVUDINE
     Indication: Foetal exposure during pregnancy
     Dosage: 800 MILLIGRAM, QD
     Route: 064
     Dates: start: 20100610
  88. ZIDOVUDINE [Suspect]
     Active Substance: ZIDOVUDINE
     Dosage: 600 MILLIGRAM, QD
     Route: 064
     Dates: start: 20090110, end: 20100610
  89. ZIDOVUDINE [Suspect]
     Active Substance: ZIDOVUDINE
     Dosage: MATERNAL DOSE: 600 MG, QD
     Route: 064
     Dates: start: 20090110, end: 20100610
  90. ZIDOVUDINE [Suspect]
     Active Substance: ZIDOVUDINE
     Dosage: MATERNAL DOSE: 800 MG, QD
     Route: 064
     Dates: start: 20100610, end: 20100610
  91. ZIDOVUDINE [Suspect]
     Active Substance: ZIDOVUDINE
     Dosage: 800 MILLIGRAM, QD
     Route: 064
     Dates: start: 20090110, end: 20100610
  92. ISENTRESS [Suspect]
     Active Substance: RALTEGRAVIR POTASSIUM
     Indication: HIV infection
     Dosage: 3200 MG, QD (800 MILLIGRAM, QID)
     Route: 064
     Dates: start: 20100610
  93. ISENTRESS [Suspect]
     Active Substance: RALTEGRAVIR POTASSIUM
     Indication: Foetal exposure during pregnancy
     Dosage: 3200 MG, QD (800 MILLIGRAM, QID)
     Route: 064
     Dates: start: 20100610
  94. ISENTRESS [Suspect]
     Active Substance: RALTEGRAVIR POTASSIUM
     Dosage: 3200 MG, QD (800 MILLIGRAM, QID)
     Route: 064
     Dates: start: 20100610
  95. ISENTRESS [Suspect]
     Active Substance: RALTEGRAVIR POTASSIUM
     Dosage: UNK
     Route: 065
     Dates: start: 20100610
  96. ISENTRESS [Suspect]
     Active Substance: RALTEGRAVIR POTASSIUM
     Dosage: 3200 MILLIGRAM, QD (MATERNAL DOSE: 3200 MG, QD (800 MILLIGRAM, QID)
     Route: 064
  97. ISENTRESS [Suspect]
     Active Substance: RALTEGRAVIR POTASSIUM
     Dosage: 800 MILLIGRAM, QID (Q16H)
     Route: 064
  98. EFAVIRENZ [Suspect]
     Active Substance: EFAVIRENZ
     Indication: Foetal exposure during pregnancy
     Dosage: MATERNAL DOSE:1 DF, QD(1TABLET/CAPSULE,DAILY) START DATE: 06-OCT-2017
     Route: 064
     Dates: end: 20180205
  99. EFAVIRENZ [Suspect]
     Active Substance: EFAVIRENZ
     Indication: HIV infection
     Dosage: MATERNAL DOSE: 1 DOSAGE FORM, QD
     Route: 064
  100. EFAVIRENZ [Suspect]
     Active Substance: EFAVIRENZ
     Indication: Maternal exposure timing unspecified
     Dosage: 1 DOSAGE FORM, QD (1 DOSAGE FORM, QD, (MATERNAL DOSE: 1 DOSAGE FORM, QD)
     Route: 064
  101. EFAVIRENZ [Suspect]
     Active Substance: EFAVIRENZ
     Dosage: 1 DF, QD; 1 TABLET/CAPSULE,DAILY START DATE: 06-OCT-2017
     Route: 064
  102. RITONAVIR [Suspect]
     Active Substance: RITONAVIR
     Indication: Antiviral treatment
     Dosage: UNK
     Route: 064
     Dates: start: 20100610
  103. RITONAVIR [Suspect]
     Active Substance: RITONAVIR
     Indication: HIV infection
     Dosage: MATERNAL DOSE: UNK
     Route: 065
  104. RITONAVIR [Suspect]
     Active Substance: RITONAVIR
     Dosage: UNK
     Route: 065
     Dates: start: 20100610
  105. RITONAVIR [Suspect]
     Active Substance: RITONAVIR
     Dosage: UNK
     Route: 065
     Dates: start: 20100610
  106. RITONAVIR [Suspect]
     Active Substance: RITONAVIR
     Dosage: MATERNAL DOSE: UNK
     Route: 065
  107. LOPINAVIR [Suspect]
     Active Substance: LOPINAVIR
     Indication: HIV infection
     Dosage: MATERNAL DOSE: UNK
     Route: 064
     Dates: start: 20100610, end: 20100610
  108. LOPINAVIR [Suspect]
     Active Substance: LOPINAVIR
     Indication: Antiviral treatment
     Dosage: UNK
     Route: 064
     Dates: start: 20100610
  109. LOPINAVIR [Suspect]
     Active Substance: LOPINAVIR
     Indication: Foetal exposure during pregnancy
  110. CYANOCOBALAMIN [Suspect]
     Active Substance: CYANOCOBALAMIN
     Indication: Foetal exposure during pregnancy
     Dosage: MATERNAL DOSE: UNK
     Route: 064
     Dates: start: 20100610
  111. CYANOCOBALAMIN [Suspect]
     Active Substance: CYANOCOBALAMIN
     Dosage: MATERNAL DOSE: 800 MG, QD
     Route: 064
     Dates: start: 20090110, end: 20100610
  112. CYANOCOBALAMIN [Suspect]
     Active Substance: CYANOCOBALAMIN
     Dosage: MATERNAL DOSE: UNK
     Route: 064
  113. LOPINAVIR\RITONAVIR [Suspect]
     Active Substance: LOPINAVIR\RITONAVIR
     Indication: Antiviral treatment
     Dosage: UNK
     Route: 064
     Dates: start: 20100610, end: 20100629
  114. LOPINAVIR\RITONAVIR [Suspect]
     Active Substance: LOPINAVIR\RITONAVIR
     Indication: Foetal exposure during pregnancy
  115. EMTRICITABINE\TENOFOVIR DISOPROXIL [Suspect]
     Active Substance: EMTRICITABINE\TENOFOVIR DISOPROXIL
     Indication: Foetal exposure during pregnancy
     Dosage: MATERNAL DOSE: 1 DF, QD START DATE: 05-FEB-2018
     Route: 065
  116. EMTRICITABINE\TENOFOVIR DISOPROXIL [Suspect]
     Active Substance: EMTRICITABINE\TENOFOVIR DISOPROXIL
     Indication: Supplementation therapy
     Dosage: MATERNAL DOSE: 1 DOSAGE FORM
     Route: 065
  117. EMTRICITABINE\TENOFOVIR DISOPROXIL [Suspect]
     Active Substance: EMTRICITABINE\TENOFOVIR DISOPROXIL
     Indication: HIV infection
     Dosage: MATERNAL DOSE: 1 DF, QD START DATE: 06-OCT-2017
     Route: 065
  118. EMTRICITABINE\TENOFOVIR DISOPROXIL [Suspect]
     Active Substance: EMTRICITABINE\TENOFOVIR DISOPROXIL
     Dosage: 1 DOSAGE FORM, QD, 1 TABLET/CAPSULE, DAILY START DATE: 06-OCT-2017
     Route: 048
  119. EMTRICITABINE\TENOFOVIR DISOPROXIL [Suspect]
     Active Substance: EMTRICITABINE\TENOFOVIR DISOPROXIL
     Dosage: MATERNAL DOSE: 1 DF, QD START DATE: 05-FEB-2018
     Route: 065
  120. FOLIC ACID [Suspect]
     Active Substance: FOLIC ACID
     Indication: Foetal exposure during pregnancy
     Dosage: 1 DF, QD (1 TABLET/CAPSULE, DAILY)
     Route: 064
  121. FOLIC ACID [Suspect]
     Active Substance: FOLIC ACID
     Indication: Supplementation therapy
     Dosage: MATERNAL DOSE: UNK
     Route: 064
  122. FOLIC ACID [Suspect]
     Active Substance: FOLIC ACID
     Dosage: 1 DF, QD (1 TABLET/CAPSULE, DAILY)
     Route: 064
  123. CYANOCOBALAMIN [Suspect]
     Active Substance: CYANOCOBALAMIN
     Indication: Product used for unknown indication
     Dosage: UNK, (MATERNAL DOSE: UNK)
     Route: 064
  124. EFAVIRENZ [Suspect]
     Active Substance: EFAVIRENZ
     Indication: Foetal exposure during pregnancy
     Dosage: 1 DOSAGE FORM, QD START DATE: 05-FEB-2018
     Route: 064
  125. EMTRICITABINE\TENOFOVIR DISOPROXIL FUMARATE [Suspect]
     Active Substance: EMTRICITABINE\TENOFOVIR DISOPROXIL FUMARATE
     Indication: HIV infection
     Dosage: 1 TABLET/CAPSULE, QD, 1 MG/ML START DATE: 06-OCT-2017
     Route: 064
  126. EMTRICITABINE\TENOFOVIR DISOPROXIL FUMARATE [Suspect]
     Active Substance: EMTRICITABINE\TENOFOVIR DISOPROXIL FUMARATE
     Indication: Foetal exposure during pregnancy
  127. COBAMAMIDE [Suspect]
     Active Substance: COBAMAMIDE
     Indication: Product used for unknown indication
     Dosage: UNK
     Route: 065
  128. COBAMAMIDE [Suspect]
     Active Substance: COBAMAMIDE
     Dosage: UNK (MATERNAL DOSE: UNK )
     Route: 064
  129. VIRAMUNE [Suspect]
     Active Substance: NEVIRAPINE
     Indication: HIV infection
     Dosage: 400 MILLIGRAM, QD
     Route: 064
     Dates: start: 20090101, end: 20100610
  130. VIRAMUNE [Suspect]
     Active Substance: NEVIRAPINE
     Dosage: 400 MILLIGRAM, QD
     Route: 064
     Dates: start: 20100610
  131. VIREAD [Suspect]
     Active Substance: TENOFOVIR DISOPROXIL FUMARATE
     Indication: Antiretroviral therapy
     Dosage: 300 MILLIGRAM
     Route: 064
     Dates: start: 20100610, end: 20100629
  132. VIREAD [Suspect]
     Active Substance: TENOFOVIR DISOPROXIL FUMARATE
     Indication: HIV infection
     Dosage: UNK
     Route: 064
     Dates: start: 20100610
  133. ZIDOVUDINE [Suspect]
     Active Substance: ZIDOVUDINE
     Indication: Antiretroviral therapy
     Dosage: 600 MILLIGRAM, QD
     Route: 064
     Dates: start: 20090101, end: 20100610

REACTIONS (16)
  - Hepatic cytolysis [Fatal]
  - Aspartate aminotransferase increased [Fatal]
  - Alanine aminotransferase increased [Fatal]
  - Abortion spontaneous [Fatal]
  - Exposure during pregnancy [Fatal]
  - Cleft lip and palate [Fatal]
  - Hydrops foetalis [Fatal]
  - Foetal exposure during pregnancy [Fatal]
  - Trisomy 18 [Fatal]
  - Intentional product use issue [Fatal]
  - Maternal exposure during pregnancy [Fatal]
  - Off label use [Fatal]
  - Caesarean section [Unknown]
  - Ultrasound antenatal screen [Unknown]
  - Drug abuse [Unknown]
  - Volvulus [Not Recovered/Not Resolved]

NARRATIVE: CASE EVENT DATE: 20100629
